FAERS Safety Report 5783048-4 (Version None)
Quarter: 2008Q2

REPORT INFORMATION
  Report Type: 
  Country: None (occurrence: None)
  Receive Date: 20080624
  Receipt Date: 20080616
  Transmission Date: 20081010
  Serious: Yes (Other)
  Sender: FDA-Public Use
  Company Number: GB-TYCO HEALTHCARE/MALLINCKRODT-T200801023

PATIENT

DRUGS (1)
  1. SODIUM IODIDE I 131 [Suspect]
     Indication: GOITRE
     Dosage: 1.11 GBQ, SINGLE

REACTIONS (2)
  - HYPERTHYROIDISM [None]
  - LAGOPHTHALMOS [None]
